FAERS Safety Report 9328830 (Version 1)
Quarter: 2013Q2

REPORT INFORMATION
  Report Type: Spontaneous
  Country: US (occurrence: US)
  Receive Date: 20130604
  Receipt Date: 20130604
  Transmission Date: 20140414
  Serious: Yes (Other)
  Sender: FDA-Public Use
  Company Number: US-SANOFI-AVENTIS-2013SA016944

PATIENT
  Age: 59 Year
  Sex: Male
  Weight: 81 kg

DRUGS (5)
  1. LANTUS [Suspect]
     Indication: TYPE 1 DIABETES MELLITUS
     Dosage: FREQUENCY QAM DOSE:33 UNIT(S)
     Route: 051
  2. HUMALOG [Concomitant]
     Indication: DIABETES MELLITUS
     Dosage: 15 YEARS DOSE:12 UNIT(S)
  3. ATENOLOL [Concomitant]
     Indication: BLOOD PRESSURE
  4. QUINAPRIL [Concomitant]
     Indication: BLOOD PRESSURE
  5. INSULIN, REGULAR [Concomitant]
     Indication: DIABETES MELLITUS
     Dosage: 46 YEARS DOSE:18 UNIT(S)

REACTIONS (1)
  - Hypoglycaemia [Recovered/Resolved]
